FAERS Safety Report 10972256 (Version 3)
Quarter: 2015Q2

REPORT INFORMATION
  Report Type: Spontaneous
  Country: US (occurrence: US)
  Receive Date: 20150331
  Receipt Date: 20150527
  Transmission Date: 20150821
  Serious: Yes (Hospitalization, Disabling)
  Sender: FDA-Public Use
  Company Number: US-009507513-1503USA013891

PATIENT
  Age: 54 Year
  Sex: Female

DRUGS (4)
  1. FOSAMAX [Suspect]
     Active Substance: ALENDRONATE SODIUM
     Indication: OSTEOPENIA
  2. FOSAMAX [Suspect]
     Active Substance: ALENDRONATE SODIUM
     Indication: OSTEOPOROSIS PROPHYLAXIS
     Dosage: 70 MG, QW
     Route: 048
     Dates: start: 20140919, end: 20150315
  3. PREDNISONE. [Concomitant]
     Active Substance: PREDNISONE
     Route: 048
  4. BUDESONIDE. [Concomitant]
     Active Substance: BUDESONIDE

REACTIONS (41)
  - Gastrooesophageal reflux disease [Recovering/Resolving]
  - Muscular weakness [Not Recovered/Not Resolved]
  - Candida infection [Unknown]
  - Dyspnoea [Unknown]
  - Vertigo [Recovering/Resolving]
  - Spinal pain [Not Recovered/Not Resolved]
  - White matter lesion [Unknown]
  - Hysterectomy [Unknown]
  - Glossitis [Unknown]
  - Ventricular extrasystoles [Unknown]
  - Somnolence [Recovering/Resolving]
  - Mood swings [Recovering/Resolving]
  - Palpitations [Recovering/Resolving]
  - Headache [Not Recovered/Not Resolved]
  - Vasculitis [Unknown]
  - Viral infection [Unknown]
  - Dizziness [Unknown]
  - Vertebral foraminal stenosis [Unknown]
  - Intervertebral disc protrusion [Unknown]
  - Mucosal inflammation [Unknown]
  - Diverticulum intestinal [Unknown]
  - Bone pain [Not Recovered/Not Resolved]
  - Urine odour abnormal [Not Recovered/Not Resolved]
  - Adverse drug reaction [Unknown]
  - Weight decreased [Not Recovered/Not Resolved]
  - Stomatitis [Recovering/Resolving]
  - Arthralgia [Recovering/Resolving]
  - Hypothyroidism [Unknown]
  - Night sweats [Unknown]
  - Phlebitis [Unknown]
  - Tricuspid valve incompetence [Unknown]
  - Dyspnoea [Recovering/Resolving]
  - Fatigue [Not Recovered/Not Resolved]
  - Alopecia [Not Recovered/Not Resolved]
  - Myalgia [Recovering/Resolving]
  - Dysphagia [Recovering/Resolving]
  - Musculoskeletal pain [Not Recovered/Not Resolved]
  - Radiculopathy [Not Recovered/Not Resolved]
  - Product use issue [Unknown]
  - Scoliosis [Unknown]
  - Benign hepatic neoplasm [Unknown]

NARRATIVE: CASE EVENT DATE: 2014
